FAERS Safety Report 11594873 (Version 1)
Quarter: 2015Q4

REPORT INFORMATION
  Report Type: Spontaneous
  Country: US (occurrence: None)
  Receive Date: 20151005
  Receipt Date: 20151005
  Transmission Date: 20160304
  Serious: Yes (Hospitalization, Other)
  Sender: FDA-Public Use
  Company Number: US-MDT-ADR-2015-01902

PATIENT
  Age: 49 Year
  Sex: Female

DRUGS (1)
  1. COMPOUNDED BACLOFEN INTRATHECAL - 5000 MCG/ML [Suspect]
     Active Substance: BACLOFEN
     Dosage: 2701.3 MCG/DAY

REACTIONS (3)
  - Mental status changes [None]
  - Hypotension [None]
  - Overdose [None]
